FAERS Safety Report 13503070 (Version 4)
Quarter: 2017Q3

REPORT INFORMATION
  Report Type: Other
  Country: US (occurrence: US)
  Receive Date: 20170502
  Receipt Date: 20170713
  Transmission Date: 20171127
  Serious: Yes (Hospitalization, Other)
  Sender: FDA-Public Use
  Company Number: US-ACORDA-ACO_137024_2017

PATIENT
  Age: 33 Year
  Sex: Male

DRUGS (8)
  1. TECFIDERA [Suspect]
     Active Substance: DIMETHYL FUMARATE
     Dosage: 240 MG, BID
     Route: 048
     Dates: start: 20150216, end: 20170219
  2. FLUTICASONE. [Concomitant]
     Active Substance: FLUTICASONE
     Indication: PRODUCT USED FOR UNKNOWN INDICATION
     Dosage: 50 MCG, UNK
     Route: 065
  3. REBIF [Concomitant]
     Active Substance: INTERFERON BETA-1A
     Indication: PRODUCT USED FOR UNKNOWN INDICATION
     Dosage: UNK
     Route: 065
  4. IBUPROFEN. [Concomitant]
     Active Substance: IBUPROFEN
     Indication: PAIN
     Dosage: 800 MG, Q8H PRN
     Route: 048
  5. PREDNISONE. [Concomitant]
     Active Substance: PREDNISONE
     Indication: PRODUCT USED FOR UNKNOWN INDICATION
     Dosage: 1 MG, UNK
     Route: 065
  6. MELOXICAM. [Concomitant]
     Active Substance: MELOXICAM
     Indication: PAIN
     Dosage: 15 MG, QD
     Route: 048
  7. TECFIDERA [Suspect]
     Active Substance: DIMETHYL FUMARATE
     Indication: MULTIPLE SCLEROSIS
     Dosage: 120 MG, BID
     Route: 048
     Dates: start: 20150209, end: 20150215
  8. AMPYRA [Suspect]
     Active Substance: DALFAMPRIDINE
     Indication: MULTIPLE SCLEROSIS
     Dosage: 10 MG, Q 12 HRS
     Route: 048
     Dates: start: 201611

REACTIONS (8)
  - Visual acuity reduced [Recovered/Resolved]
  - Multiple sclerosis relapse [Recovered/Resolved]
  - Optic neuritis [Recovered/Resolved]
  - Nausea [Recovered/Resolved]
  - Cholelithiasis [Recovered/Resolved]
  - Vomiting [Recovered/Resolved]
  - Multiple sclerosis relapse [Recovered/Resolved]
  - Surgery [Recovered/Resolved]

NARRATIVE: CASE EVENT DATE: 2017
